FAERS Safety Report 11930931 (Version 1)
Quarter: 2016Q1

REPORT INFORMATION
  Report Type: Spontaneous
  Country: US (occurrence: US)
  Receive Date: 20160120
  Receipt Date: 20160120
  Transmission Date: 20160526
  Serious: No
  Sender: FDA-Public Use
  Company Number: US-INCYTE CORPORATION-2015IN004092

PATIENT
  Age: 81 Year
  Sex: Male

DRUGS (1)
  1. JAKAFI [Suspect]
     Active Substance: RUXOLITINIB
     Indication: POLYCYTHAEMIA VERA
     Dosage: 30 MG, (20 MG QAM, 10 MG QPM), QD
     Route: 048
     Dates: start: 20150529

REACTIONS (3)
  - Dizziness [Unknown]
  - Vision blurred [Unknown]
  - Medication error [Unknown]

NARRATIVE: CASE EVENT DATE: 20150817
